FAERS Safety Report 5729107-3 (Version None)
Quarter: 2008Q2

REPORT INFORMATION
  Report Type: 
  Country: None (occurrence: None)
  Receive Date: 20080506
  Receipt Date: 20080425
  Transmission Date: 20081010
  Serious: Yes (Hospitalization)
  Sender: FDA-Public Use
  Company Number: DE-WYE-H03522808

PATIENT
  Sex: Male
  Weight: 83.3 kg

DRUGS (2)
  1. PANTOPRAZOLE SODIUM [Suspect]
     Route: 048
     Dates: start: 20070101
  2. REMERGIL [Interacting]
     Indication: DEPRESSION
     Dosage: ^1/DAY DF^
     Route: 048
     Dates: start: 20040101

REACTIONS (2)
  - DRUG INTERACTION [None]
  - HEPATOTOXICITY [None]
